FAERS Safety Report 5144981-X (Version None)
Quarter: 2006Q4

REPORT INFORMATION
  Report Type: 
  Country: None (occurrence: None)
  Receive Date: 20061107
  Receipt Date: 20061030
  Transmission Date: 20070319
  Serious: Yes (Other)
  Sender: FDA-Public Use
  Company Number: US-NOVOPROD-258130

PATIENT
  Age: 14 Year
  Sex: Female

DRUGS (2)
  1. NORDITROPIN NORDIFLEX [Suspect]
     Dosage: 2 MG, QD
     Route: 058
     Dates: start: 20050228, end: 20060621
  2. NORDITROPIN NORDIFLEX [Suspect]
     Dosage: 3.4 MG, QD
     Route: 058
     Dates: start: 20060621, end: 20061001

REACTIONS (1)
  - BONE FORMATION INCREASED [None]
